FAERS Safety Report 24056237 (Version 2)
Quarter: 2024Q3

REPORT INFORMATION
  Report Type: Report from Study
  Country: NL (occurrence: NL)
  Receive Date: 20240705
  Receipt Date: 20240926
  Transmission Date: 20241017
  Serious: Yes (Hospitalization)
  Sender: ABBVIE
  Company Number: NL-ABBVIE-5826205

PATIENT
  Age: 71 Year
  Sex: Male

DRUGS (13)
  1. CARBIDOPA\LEVODOPA [Suspect]
     Active Substance: CARBIDOPA\LEVODOPA
     Indication: Parkinson^s disease
     Dosage: MD 15.0 ML; CD 5.4 ML/H; ED 3.0 ML; REMAINS AT 16 HOURS
     Route: 050
     Dates: start: 20240201, end: 20240207
  2. CARBIDOPA\LEVODOPA [Suspect]
     Active Substance: CARBIDOPA\LEVODOPA
     Route: 050
     Dates: start: 20130114
  3. CARBIDOPA\LEVODOPA [Suspect]
     Active Substance: CARBIDOPA\LEVODOPA
     Dosage: MD 10.0 ML; CD 5.5 ML/H; ED 3.0 ML; END 2.0 ML; CND 5.0ML/H; REMAINS AT 24 HOURS
     Route: 050
     Dates: start: 20240917
  4. CARBIDOPA\LEVODOPA [Suspect]
     Active Substance: CARBIDOPA\LEVODOPA
     Dosage: MD 10.0 ML; CD 5.4 ML/H; ED 3.0 ML; END 3.0 ML; CND 4.9ML/H; REMAINS AT 24 HOURS
     Route: 050
     Dates: start: 20240207, end: 20240305
  5. CARBIDOPA\LEVODOPA [Suspect]
     Active Substance: CARBIDOPA\LEVODOPA
     Dosage: MD 15.0 ML; CD 5.6 ML/H; ED 3.0 ML; END 3.0 ML; CND 5.2ML/H; REMAINS AT 24 HOURS
     Route: 050
     Dates: start: 20231110, end: 20240201
  6. CARBIDOPA\LEVODOPA [Suspect]
     Active Substance: CARBIDOPA\LEVODOPA
     Dosage: MD 10.0 ML; CD 5.5 ML/H; ED 3.0 ML; END 3.0 ML; CND 5.0ML/H; REMAINS AT 24 HOURS
     Route: 050
     Dates: start: 20240305, end: 20240917
  7. POLYETHYLENE GLYCOLS [Concomitant]
     Active Substance: POLYETHYLENE GLYCOLS
     Indication: Gastrointestinal motility disorder
     Dosage: IF NECESSARY
  8. MAGNESIUM HYDROXIDE [Concomitant]
     Active Substance: MAGNESIUM HYDROXIDE
     Indication: Abnormal faeces
     Dosage: TWICE A DAY 3 TABLETS
  9. HYDROXOCOBALAMIN HYDROCHLORIDE [Concomitant]
     Active Substance: HYDROXOCOBALAMIN HYDROCHLORIDE
     Indication: Product used for unknown indication
     Dosage: ONE ON MONDAY AND THURSDAY
  10. OMEPRAZOLE [Concomitant]
     Active Substance: OMEPRAZOLE
     Indication: Product used for unknown indication
  11. MOVICOLON [Concomitant]
     Active Substance: POLYETHYLENE GLYCOL 3350\POTASSIUM CHLORIDE\SODIUM BICARBONATE\SODIUM CHLORIDE
     Indication: Gastrointestinal motility disorder
  12. CALCIUM [Concomitant]
     Active Substance: CALCIUM
     Indication: Product used for unknown indication
  13. CHOLECALCIFEROL [Concomitant]
     Active Substance: CHOLECALCIFEROL
     Indication: Product used for unknown indication

REACTIONS (18)
  - Cerebrovascular accident [Not Recovered/Not Resolved]
  - Hallucination [Not Recovered/Not Resolved]
  - Nocturia [Not Recovered/Not Resolved]
  - Stoma site odour [Not Recovered/Not Resolved]
  - Dysphagia [Not Recovered/Not Resolved]
  - Cognitive disorder [Not Recovered/Not Resolved]
  - Suspiciousness [Not Recovered/Not Resolved]
  - Confusional state [Not Recovered/Not Resolved]
  - Incontinence [Not Recovered/Not Resolved]
  - Device issue [Not Recovered/Not Resolved]
  - Urinary tract infection [Not Recovered/Not Resolved]
  - Infection [Not Recovered/Not Resolved]
  - Delusion [Not Recovered/Not Resolved]
  - Dyskinesia [Not Recovered/Not Resolved]
  - Stereotypy [Not Recovered/Not Resolved]
  - Bladder disorder [Not Recovered/Not Resolved]
  - Anxiety [Not Recovered/Not Resolved]
  - Poor quality sleep [Not Recovered/Not Resolved]

NARRATIVE: CASE EVENT DATE: 20240101
